FAERS Safety Report 13092975 (Version 1)
Quarter: 2017Q1

REPORT INFORMATION
  Report Type: Spontaneous
  Country: SE (occurrence: SE)
  Receive Date: 20170106
  Receipt Date: 20170106
  Transmission Date: 20170428
  Serious: Yes (Hospitalization)
  Sender: FDA-Public Use
  Company Number: SE-TEVA-724898ACC

PATIENT
  Age: 59 Year
  Sex: Female

DRUGS (3)
  1. STESOLID [Suspect]
     Active Substance: DIAZEPAM
     Dosage: 13 ST
     Dates: start: 20161215, end: 20161215
  2. PROPAVAN [Suspect]
     Active Substance: PROPIOMAZINE
     Dosage: 8 ST
     Dates: start: 20161215, end: 20161215
  3. PROMETHAZINE [Suspect]
     Active Substance: PROMETHAZINE\PROMETHAZINE HYDROCHLORIDE
     Dosage: 15-20 ST
     Dates: start: 20161215, end: 20161215

REACTIONS (3)
  - Lethargy [Recovered/Resolved]
  - Toxicity to various agents [Recovered/Resolved]
  - Intentional self-injury [Recovered/Resolved]

NARRATIVE: CASE EVENT DATE: 20161215
